FAERS Safety Report 22141429 (Version 1)
Quarter: 2023Q1

REPORT INFORMATION
  Report Type: Spontaneous
  Country: US (occurrence: US)
  Receive Date: 20230327
  Receipt Date: 20230327
  Transmission Date: 20230417
  Serious: No
  Sender: FDA-Public Use
  Company Number: US-GLAXOSMITHKLINE-USCH2023013108

PATIENT
  Sex: Female

DRUGS (1)
  1. EMERGEN-C [Suspect]
     Active Substance: VITAMINS
     Indication: Illness
     Dosage: UNK
     Dates: start: 202303

REACTIONS (1)
  - Drug effect less than expected [Unknown]

NARRATIVE: CASE EVENT DATE: 20230301
